FAERS Safety Report 19250727 (Version 1)
Quarter: 2021Q2

REPORT INFORMATION
  Report Type: Spontaneous
  Country: US (occurrence: US)
  Receive Date: 20210513
  Receipt Date: 20210513
  Transmission Date: 20210717
  Serious: No
  Sender: FDA-Public Use
  Company Number: US-TEVA-2021-US-1910548

PATIENT
  Sex: Female

DRUGS (1)
  1. CLARAVIS [Suspect]
     Active Substance: ISOTRETINOIN
     Indication: ACNE
     Route: 065

REACTIONS (11)
  - Treatment noncompliance [Unknown]
  - Malaise [Unknown]
  - Headache [Unknown]
  - Chills [Unknown]
  - Dry skin [Unknown]
  - Decreased appetite [Unknown]
  - Epistaxis [Unknown]
  - Pain in extremity [Unknown]
  - Chest pain [Unknown]
  - Arthralgia [Unknown]
  - Skin exfoliation [Unknown]
